FAERS Safety Report 19148187 (Version 3)
Quarter: 2022Q1

REPORT INFORMATION
  Report Type: Report from Study
  Country: US (occurrence: US)
  Receive Date: 20210416
  Receipt Date: 20220121
  Transmission Date: 20220423
  Serious: Yes (Hospitalization, Other)
  Sender: FDA-Public Use
  Company Number: US-TAKEDA-2021TUS023406

PATIENT
  Sex: Male

DRUGS (12)
  1. TEDUGLUTIDE [Suspect]
     Active Substance: TEDUGLUTIDE
     Indication: Product used for unknown indication
     Dosage: 0.1650 UNKNOWN UNITS
     Route: 065
     Dates: start: 20210312
  2. TEDUGLUTIDE [Suspect]
     Active Substance: TEDUGLUTIDE
     Indication: Product used for unknown indication
     Dosage: 0.1650 UNKNOWN UNITS
     Route: 065
     Dates: start: 20210312
  3. TEDUGLUTIDE [Suspect]
     Active Substance: TEDUGLUTIDE
     Indication: Product used for unknown indication
     Dosage: 0.1650 UNKNOWN UNITS
     Route: 065
     Dates: start: 20210312
  4. TEDUGLUTIDE [Suspect]
     Active Substance: TEDUGLUTIDE
     Indication: Product used for unknown indication
     Dosage: 0.1650 UNKNOWN UNITS
     Route: 065
     Dates: start: 20210312
  5. TEDUGLUTIDE [Suspect]
     Active Substance: TEDUGLUTIDE
     Dosage: UNK UNK, QD
     Route: 050
     Dates: start: 20210312
  6. TEDUGLUTIDE [Suspect]
     Active Substance: TEDUGLUTIDE
     Dosage: UNK UNK, QD
     Route: 050
     Dates: start: 20210312
  7. TEDUGLUTIDE [Suspect]
     Active Substance: TEDUGLUTIDE
     Dosage: UNK UNK, QD
     Route: 050
     Dates: start: 20210312
  8. TEDUGLUTIDE [Suspect]
     Active Substance: TEDUGLUTIDE
     Dosage: UNK UNK, QD
     Route: 050
     Dates: start: 20210312
  9. TEDUGLUTIDE [Suspect]
     Active Substance: TEDUGLUTIDE
     Dosage: UNK UNK, QD
     Route: 050
     Dates: start: 20210312
  10. TEDUGLUTIDE [Suspect]
     Active Substance: TEDUGLUTIDE
     Dosage: UNK UNK, QD
     Route: 050
     Dates: start: 20210312
  11. TEDUGLUTIDE [Suspect]
     Active Substance: TEDUGLUTIDE
     Dosage: UNK UNK, QD
     Route: 050
     Dates: start: 20210312
  12. TEDUGLUTIDE [Suspect]
     Active Substance: TEDUGLUTIDE
     Dosage: UNK UNK, QD
     Route: 050
     Dates: start: 20210312

REACTIONS (4)
  - Pyrexia [Unknown]
  - Malaise [Unknown]
  - Weight decreased [Unknown]
  - Product reconstitution quality issue [Unknown]
